FAERS Safety Report 24546400 (Version 1)
Quarter: 2024Q4

REPORT INFORMATION
  Report Type: Spontaneous
  Country: US (occurrence: US)
  Receive Date: 20241024
  Receipt Date: 20241024
  Transmission Date: 20250114
  Serious: No
  Sender: CALLIDITAS THERAPEUTICS AB
  Company Number: US-Calliditas-2024CAL01811

PATIENT
  Age: 39 Year
  Sex: Male
  Weight: 65.9 kg

DRUGS (14)
  1. TARPEYO [Suspect]
     Active Substance: BUDESONIDE
     Indication: IgA nephropathy
     Route: 048
     Dates: start: 20240909, end: 20240912
  2. ALLOPURINOL [Concomitant]
     Active Substance: ALLOPURINOL
  3. PEPCID [Concomitant]
     Active Substance: FAMOTIDINE
  4. MYFORTIC [Concomitant]
     Active Substance: MYCOPHENOLATE SODIUM
  5. PREDNISONE [Concomitant]
     Active Substance: PREDNISONE
  6. BACTRIM [Concomitant]
     Active Substance: SULFAMETHOXAZOLE\TRIMETHOPRIM
  7. FLOMAX [Concomitant]
     Active Substance: TAMSULOSIN HYDROCHLORIDE
  8. VALGANCICLOVIR [Concomitant]
     Active Substance: VALGANCICLOVIR
  9. ACETAMINOPHEN [Concomitant]
     Active Substance: ACETAMINOPHEN
  10. COREG [Concomitant]
     Active Substance: CARVEDILOL
  11. GABAPENTIN [Concomitant]
     Active Substance: GABAPENTIN
  12. DOCUSATE SODIUM\SENNOSIDES A AND B [Concomitant]
     Active Substance: DOCUSATE SODIUM\SENNOSIDES A AND B
  13. PROGRAF [Concomitant]
     Active Substance: TACROLIMUS
  14. VALTREX [Concomitant]
     Active Substance: VALACYCLOVIR HYDROCHLORIDE

REACTIONS (4)
  - Chapped lips [Recovered/Resolved]
  - Lip blister [Recovered/Resolved]
  - Oral candidiasis [Recovered/Resolved]
  - Circumoral swelling [Unknown]

NARRATIVE: CASE EVENT DATE: 20240911
